FAERS Safety Report 5369207-3 (Version None)
Quarter: 2007Q2

REPORT INFORMATION
  Report Type: 
  Country: None (occurrence: None)
  Receive Date: 20070625
  Receipt Date: 20070613
  Transmission Date: 20071010
  Serious: Yes (Life-Threatening, Hospitalization)
  Sender: FDA-Public Use
  Company Number: BR-ROCHE-502721

PATIENT
  Age: 18 Year
  Sex: Female

DRUGS (3)
  1. RIVOTRIL [Suspect]
     Indication: DRUG USE FOR UNKNOWN INDICATION
     Route: 048
     Dates: start: 20070612, end: 20070612
  2. CONTRACEPTIVE NOS [Concomitant]
     Dosage: DRUG RPTD AS UNSPECIFIED CONTRACEPTIVE
     Route: 048
     Dates: start: 20070612, end: 20070612
  3. UNSPECIFIED DRUGS [Concomitant]
     Route: 048
     Dates: start: 20070612, end: 20070612

REACTIONS (2)
  - MEDICATION ERROR [None]
  - SYNCOPE [None]
